FAERS Safety Report 10060647 (Version 1)
Quarter: 2014Q2

REPORT INFORMATION
  Report Type: Spontaneous
  Country: US (occurrence: US)
  Receive Date: 20140404
  Receipt Date: 20140404
  Transmission Date: 20141212
  Serious: No
  Sender: FDA-Public Use
  Company Number: US-GILEAD-2014-0098464

PATIENT
  Sex: Male

DRUGS (3)
  1. RANEXA [Suspect]
     Indication: PRODUCT USED FOR UNKNOWN INDICATION
     Dosage: 500 MG, BID
     Route: 048
  2. METOPROLOL [Concomitant]
     Dosage: 50 MG, BID
     Route: 048
  3. METOPROLOL [Concomitant]
     Dosage: 25 MG, BID
     Route: 048

REACTIONS (1)
  - Bradycardia [Recovered/Resolved]
